FAERS Safety Report 7389375-1 (Version None)
Quarter: 2011Q2

REPORT INFORMATION
  Report Type: 
  Country: None (occurrence: None)
  Receive Date: 20110401
  Receipt Date: 20110323
  Transmission Date: 20111010
  Serious: Yes (Other)
  Sender: FDA-Public Use
  Company Number: B0708831A

PATIENT
  Age: 51 Year
  Sex: Female

DRUGS (1)
  1. TYVERB [Suspect]
     Dosage: 1000MG PER DAY
     Route: 048

REACTIONS (2)
  - HEPATOTOXICITY [None]
  - MUCOSAL INFLAMMATION [None]
